FAERS Safety Report 17734458 (Version 1)
Quarter: 2020Q2

REPORT INFORMATION
  Report Type: Report from Study
  Country: CO (occurrence: CO)
  Receive Date: 20200501
  Receipt Date: 20200501
  Transmission Date: 20200714
  Serious: Yes (Other)
  Sender: FDA-Public Use
  Company Number: NVSC2018CO003674

PATIENT
  Sex: Male

DRUGS (1)
  1. EXJADE [Suspect]
     Active Substance: DEFERASIROX
     Indication: METABOLIC DISORDER
     Dosage: 500 MG, QD
     Route: 065

REACTIONS (4)
  - Abdominal pain [Recovering/Resolving]
  - Product use in unapproved indication [Unknown]
  - Haematochezia [Recovering/Resolving]
  - Blister [Recovering/Resolving]
